FAERS Safety Report 8224745-0 (Version None)
Quarter: 2012Q1

REPORT INFORMATION
  Report Type: 
  Country: None (occurrence: None)
  Receive Date: 20120321
  Receipt Date: 20120319
  Transmission Date: 20120608
  Serious: Yes (Hospitalization)
  Sender: FDA-Public Use
  Company Number: PHEH2012US002427

PATIENT
  Age: 48 Year
  Sex: Male

DRUGS (2)
  1. ANXIOLYTICS [Suspect]
  2. CLOZARIL [Suspect]

REACTIONS (3)
  - PSYCHOTIC DISORDER [None]
  - WRONG DRUG ADMINISTERED [None]
  - ANXIETY [None]
